FAERS Safety Report 13446457 (Version 1)
Quarter: 2017Q2

REPORT INFORMATION
  Report Type: Spontaneous
  Country: CH (occurrence: CH)
  Receive Date: 20170417
  Receipt Date: 20170417
  Transmission Date: 20170830
  Serious: Yes (Hospitalization)
  Sender: FDA-Public Use
  Company Number: CH-TEVA-757630ISR

PATIENT
  Age: 75 Year
  Sex: Male

DRUGS (6)
  1. LOSARTAN HCT MEPHA LACTABS [Suspect]
     Active Substance: HYDROCHLOROTHIAZIDE\LOSARTAN POTASSIUM
     Dosage: LOSARTAN KALIUM- 50MG, HYDROCHLOROTHYAZID 12.5MG
     Route: 048
  2. XARELTO [Suspect]
     Active Substance: RIVAROXABAN
     Dosage: 20 MILLIGRAM DAILY;
     Dates: start: 2015
  3. METOPROLOL MEPHA ZOK [Suspect]
     Active Substance: METOPROLOL SUCCINATE
     Route: 065
  4. DAFALGAN [Concomitant]
     Active Substance: ACETAMINOPHEN
  5. CRESTOR [Concomitant]
     Active Substance: ROSUVASTATIN CALCIUM
     Dosage: 0.5 IN 1 DAY
  6. NOVALGIN [Concomitant]
     Active Substance: METAMIZOLE SODIUM

REACTIONS (8)
  - Haematoma [None]
  - Emphysema [None]
  - Fall [None]
  - Epistaxis [Recovered/Resolved]
  - Nasal injury [None]
  - Syncope [Recovered/Resolved]
  - Head injury [None]
  - Facial bones fracture [None]

NARRATIVE: CASE EVENT DATE: 20160926
